FAERS Safety Report 10333512 (Version 6)
Quarter: 2015Q4

REPORT INFORMATION
  Report Type: Report from Study
  Country: DK (occurrence: DK)
  Receive Date: 20140722
  Receipt Date: 20151008
  Transmission Date: 20160304
  Serious: Yes (Hospitalization)
  Sender: FDA-Public Use
  Company Number: DK-009507513-1404DNK013990

PATIENT
  Age: 53 Year
  Sex: Female
  Weight: 80 kg

DRUGS (10)
  1. SIMVASTATIN. [Concomitant]
     Active Substance: SIMVASTATIN
     Indication: HYPERCHOLESTEROLAEMIA
     Dosage: 20 MG, QD
     Route: 048
     Dates: start: 201201
  2. TRADOLAN [Concomitant]
     Active Substance: TRAMADOL
     Indication: PLEURODESIS
     Dosage: UNK, PRN
     Route: 048
     Dates: start: 20140326, end: 20140327
  3. IPREN [Concomitant]
     Active Substance: IBUPROFEN
     Indication: PAIN
     Dosage: TOTAL DAILY DOSE 400 MG, PRN
     Route: 048
     Dates: start: 20130209
  4. PEMBROLIZUMAB. [Suspect]
     Active Substance: PEMBROLIZUMAB
     Indication: NON-SMALL CELL LUNG CANCER
     Dosage: 2 MG/KG, Q3W
     Route: 042
     Dates: start: 20140207, end: 20140227
  5. RODE MORFIN DRABER [Concomitant]
     Indication: PALLIATIVE CARE
     Dosage: UNK, PRN, STRENGTH: 1 (UNIT NOT REPORTED)
     Route: 048
     Dates: start: 20140305
  6. PINEX [Concomitant]
     Active Substance: ACETAMINOPHEN
     Indication: PAIN
     Dosage: TOTAL DAILY DOSAGE 3000MG, PRN
     Route: 048
     Dates: start: 20140209
  7. AMLODIPINE [Concomitant]
     Active Substance: AMLODIPINE BESYLATE
     Indication: HYPERTENSION
     Dosage: 5 MG, QD
     Route: 048
     Dates: start: 201201
  8. MORPHINE [Concomitant]
     Active Substance: MORPHINE
     Indication: ANALGESIC THERAPY
     Dosage: STRENGTH: 10 (UNIT NOT REPORTED), PRN
     Route: 048
     Dates: start: 20140327
  9. PEMBROLIZUMAB. [Suspect]
     Active Substance: PEMBROLIZUMAB
     Dosage: 2 MG/KG, Q3W
     Route: 042
     Dates: start: 20140320, end: 20140320
  10. CONTALGIN [Concomitant]
     Active Substance: MORPHINE SULFATE
     Indication: CANCER PAIN
     Dosage: 5 MG, BID
     Route: 048
     Dates: start: 20140327

REACTIONS (1)
  - Pneumonitis chemical [Not Recovered/Not Resolved]

NARRATIVE: CASE EVENT DATE: 20140403
